FAERS Safety Report 8315840-6 (Version None)
Quarter: 2012Q2

REPORT INFORMATION
  Report Type: 
  Country: None (occurrence: None)
  Receive Date: 20120427
  Receipt Date: 20120420
  Transmission Date: 20120825
  Serious: Yes (Life-Threatening, Hospitalization)
  Sender: FDA-Public Use
  Company Number: FR-BIOGENIDEC-2012BI013844

PATIENT
  Age: 38 Year
  Sex: Female

DRUGS (5)
  1. LIORESAL [Concomitant]
  2. DIANE [Concomitant]
     Indication: ORAL CONTRACEPTION
  3. TYSABRI [Suspect]
     Indication: MULTIPLE SCLEROSIS
     Route: 042
     Dates: start: 20091001
  4. LYRICA [Concomitant]
  5. AMITRIPTYLINE HCL [Concomitant]

REACTIONS (1)
  - PULMONARY EMBOLISM [None]
